FAERS Safety Report 25417568 (Version 1)
Quarter: 2025Q2

REPORT INFORMATION
  Report Type: Spontaneous
  Country: US (occurrence: US)
  Receive Date: 20250610
  Receipt Date: 20250610
  Transmission Date: 20250717
  Serious: Yes (Other)
  Sender: ROCHE
  Company Number: US-ROCHE-10000302529

PATIENT
  Age: 82 Year

DRUGS (1)
  1. VABYSMO [Suspect]
     Active Substance: FARICIMAB-SVOA
     Indication: Venous occlusion
     Route: 065
     Dates: start: 20241009

REACTIONS (5)
  - Feeling abnormal [Unknown]
  - Visual impairment [Unknown]
  - Ocular stroke [Unknown]
  - Depression [Unknown]
  - Off label use [Unknown]
